FAERS Safety Report 4271335-0 (Version None)
Quarter: 2004Q1

REPORT INFORMATION
  Report Type: 
  Country: None (occurrence: None)
  Receive Date: 20040114
  Receipt Date: 20040114
  Transmission Date: 20041129
  Serious: Yes (Other)
  Sender: FDA-Public Use
  Company Number: None

PATIENT
  Age: 72 Year
  Sex: Female
  Weight: 53.5244 kg

DRUGS (7)
  1. PREVACID [Suspect]
     Indication: GASTROOESOPHAGEAL REFLUX DISEASE
     Dosage: 30MG DR CAP 1 PER DAY
     Dates: start: 20030409, end: 20030515
  2. ESTRADIOL [Concomitant]
  3. ASPIRIN [Concomitant]
  4. MULTIVITAMIN [Concomitant]
  5. VC [Concomitant]
  6. CITRACEL [Concomitant]
  7. VE [Concomitant]

REACTIONS (4)
  - DRUG HYPERSENSITIVITY [None]
  - RASH [None]
  - SKIN IRRITATION [None]
  - URTICARIA [None]
